FAERS Safety Report 5021496-0 (Version None)
Quarter: 2006Q2

REPORT INFORMATION
  Report Type: 
  Country: None (occurrence: None)
  Receive Date: 20060605
  Receipt Date: 20060524
  Transmission Date: 20061013
  Serious: Yes (Other)
  Sender: FDA-Public Use
  Company Number: 225545

PATIENT
  Age: 64 Year
  Sex: Female

DRUGS (1)
  1. AVASTIN [Suspect]
     Dosage: INTRAOCULAR
     Route: 031
     Dates: start: 20060610

REACTIONS (5)
  - EYE SWELLING [None]
  - OCULAR HYPERAEMIA [None]
  - PAIN [None]
  - SWELLING [None]
  - VISUAL DISTURBANCE [None]
